FAERS Safety Report 19233447 (Version 2)
Quarter: 2022Q1

REPORT INFORMATION
  Report Type: Spontaneous
  Country: US (occurrence: None)
  Receive Date: 20210507
  Receipt Date: 20220104
  Transmission Date: 20220423
  Serious: Yes (Other)
  Sender: FDA-Public Use
  Company Number: 2021A390940

PATIENT
  Sex: Female

DRUGS (26)
  1. NEXIUM [Suspect]
     Active Substance: ESOMEPRAZOLE MAGNESIUM
     Indication: Gastrooesophageal reflux disease
     Route: 048
     Dates: start: 2011, end: 2018
  2. PRILOSEC [Suspect]
     Active Substance: OMEPRAZOLE MAGNESIUM
     Indication: Gastrooesophageal reflux disease
     Route: 048
     Dates: start: 2011, end: 2018
  3. PRILOSEC [Suspect]
     Active Substance: OMEPRAZOLE MAGNESIUM
     Indication: Gastrooesophageal reflux disease
     Dosage: GENERIC
     Route: 065
     Dates: start: 2016
  4. PRILOSEC OTC [Suspect]
     Active Substance: OMEPRAZOLE MAGNESIUM
     Indication: Gastrooesophageal reflux disease
     Route: 048
     Dates: start: 2011, end: 2018
  5. ALLOPURINOL [Concomitant]
     Active Substance: ALLOPURINOL
  6. DICLOFENAC [Concomitant]
     Active Substance: DICLOFENAC
  7. KETOROLAC [Concomitant]
     Active Substance: KETOROLAC TROMETHAMINE
  8. LISINOPRIL [Concomitant]
     Active Substance: LISINOPRIL
  9. LOSARTAN [Concomitant]
     Active Substance: LOSARTAN
  10. AZITHROMYCIN [Concomitant]
     Active Substance: AZITHROMYCIN
  11. INDOMETHACIN [Concomitant]
     Active Substance: INDOMETHACIN
  12. TRAMADOL [Concomitant]
     Active Substance: TRAMADOL
  13. NAPROXEN [Concomitant]
     Active Substance: NAPROXEN
  14. AMOXICILLIN [Concomitant]
     Active Substance: AMOXICILLIN
  15. PENICILLIN [Concomitant]
     Active Substance: PENICILLIN
  16. MELOXICAM [Concomitant]
     Active Substance: MELOXICAM
  17. DOXYCYCLINE [Concomitant]
     Active Substance: DOXYCYCLINE
  18. SILDENAFIL [Concomitant]
     Active Substance: SILDENAFIL
  19. GABAPENTIN [Concomitant]
     Active Substance: GABAPENTIN
  20. PREDNISONE [Concomitant]
     Active Substance: PREDNISONE
  21. FLUCONAZOLE [Concomitant]
     Active Substance: FLUCONAZOLE
  22. ALPRAZOLAM [Concomitant]
     Active Substance: ALPRAZOLAM
  23. IBUPROFEN [Concomitant]
     Active Substance: IBUPROFEN
  24. QUETIAPINE [Concomitant]
     Active Substance: QUETIAPINE
  25. METHYLPREDNISOLONE [Concomitant]
     Active Substance: METHYLPREDNISOLONE
  26. ADVAIR HFA [Concomitant]
     Active Substance: FLUTICASONE PROPIONATE\SALMETEROL XINAFOATE

REACTIONS (1)
  - Chronic kidney disease [Not Recovered/Not Resolved]
